FAERS Safety Report 4722903-0 (Version None)
Quarter: 2005Q3

REPORT INFORMATION
  Report Type: 
  Country: None (occurrence: None)
  Receive Date: 20050722
  Receipt Date: 20050415
  Transmission Date: 20060218
  Serious: Yes (Other)
  Sender: FDA-Public Use
  Company Number: US-ABBOTT-05P-163-0297601-00

PATIENT
  Sex: Male
  Weight: 2.724 kg

DRUGS (4)
  1. KALETRA [Suspect]
     Indication: DRUG EXPOSURE DURING PREGNANCY
  2. LAMIVUDINE + ZIDOVUDINE [Suspect]
     Indication: DRUG EXPOSURE DURING PREGNANCY
  3. NEVIRAPINE [Suspect]
     Indication: DRUG EXPOSURE DURING PREGNANCY
  4. TENOFOVIR [Suspect]
     Indication: DRUG EXPOSURE DURING PREGNANCY

REACTIONS (2)
  - PREMATURE BABY [None]
  - SEPSIS [None]
